FAERS Safety Report 8977863 (Version 1)
Quarter: 2012Q4

REPORT INFORMATION
  Report Type: 
  Country: FR (occurrence: FR)
  Receive Date: 20121219
  Receipt Date: 20121219
  Transmission Date: 20130627
  Serious: Yes (Hospitalization)
  Sender: FDA-Public Use
  Company Number: FR-ASTRAZENECA-2012SE92755

PATIENT
  Age: 27774 Day
  Sex: Male

DRUGS (4)
  1. XEROQUEL [Suspect]
     Indication: PSYCHOTIC DISORDER
     Route: 048
     Dates: start: 20121010
  2. SERESTA [Suspect]
     Indication: PSYCHOTIC DISORDER
     Route: 048
     Dates: start: 20121010
  3. DEPAKINE [Concomitant]
     Indication: EPILEPSY
     Route: 048
  4. ZYLORIC [Concomitant]
     Indication: GOUT
     Route: 048

REACTIONS (3)
  - Decreased appetite [Not Recovered/Not Resolved]
  - Weight decreased [Not Recovered/Not Resolved]
  - Asthenia [Not Recovered/Not Resolved]
